APPROVED DRUG PRODUCT: CEFTRIAXONE
Active Ingredient: CEFTRIAXONE SODIUM
Strength: EQ 10GM BASE/VIAL
Dosage Form/Route: INJECTABLE;INJECTION
Application: A065269 | Product #001
Applicant: FACTA FARMACEUTICI SPA
Approved: Feb 28, 2007 | RLD: No | RS: No | Type: DISCN